FAERS Safety Report 16154543 (Version 1)
Quarter: 2019Q2

REPORT INFORMATION
  Report Type: Report from Study
  Country: IT (occurrence: IT)
  Receive Date: 20190403
  Receipt Date: 20190403
  Transmission Date: 20190711
  Serious: Yes (Other)
  Sender: FDA-Public Use
  Company Number: IT-ROCHE-2289415

PATIENT

DRUGS (6)
  1. SIMEPREVIR [Suspect]
     Active Substance: SIMEPREVIR
     Indication: CHRONIC HEPATITIS C
     Route: 065
  2. OMBITASVIR/PARITAPREVIR/RITONAVIR [Suspect]
     Active Substance: OMBITASVIR\PARITAPREVIR\RITONAVIR
     Indication: CHRONIC HEPATITIS C
     Route: 065
  3. DASABUVIR [Suspect]
     Active Substance: DASABUVIR
     Indication: CHRONIC HEPATITIS C
     Route: 065
  4. RIBAVIRIN. [Suspect]
     Active Substance: RIBAVIRIN
     Indication: CHRONIC HEPATITIS C
     Route: 065
  5. SOFOSBUVIR [Suspect]
     Active Substance: SOFOSBUVIR
     Indication: CHRONIC HEPATITIS C
     Route: 065
  6. LEDIPASVIR [Suspect]
     Active Substance: LEDIPASVIR
     Indication: CHRONIC HEPATITIS C
     Route: 065

REACTIONS (14)
  - Pruritus [Unknown]
  - Nausea [Unknown]
  - Headache [Unknown]
  - Hyperbilirubinaemia [Unknown]
  - Hepatocellular carcinoma [Unknown]
  - Irritability [Unknown]
  - Insomnia [Unknown]
  - Anaemia [Unknown]
  - Pleural effusion [Unknown]
  - Fatigue [Unknown]
  - Rash [Unknown]
  - Dyspepsia [Unknown]
  - Haemoglobin decreased [Unknown]
  - Ischaemic stroke [Unknown]
